FAERS Safety Report 4572015-4 (Version None)
Quarter: 2005Q1

REPORT INFORMATION
  Report Type: 
  Country: None (occurrence: None)
  Receive Date: 20050203
  Receipt Date: 20050203
  Transmission Date: 20050727
  Serious: Yes (Other)
  Sender: FDA-Public Use
  Company Number: None

PATIENT
  Age: 6 Year
  Sex: Male
  Weight: 17.9 kg

DRUGS (2)
  1. CEFUROXIME ORAL LIQUID [Suspect]
     Dosage: 250 MG PO Q 12 HR.
     Route: 048
     Dates: start: 20041117
  2. OMEPRAZOLE ORAL LIQUID [Suspect]
     Dosage: 12 MG QD
     Dates: start: 20041117

REACTIONS (3)
  - DYSPHAGIA [None]
  - PRURITUS [None]
  - URTICARIA [None]
